FAERS Safety Report 25774783 (Version 1)
Quarter: 2025Q3

REPORT INFORMATION
  Report Type: Spontaneous
  Country: US (occurrence: US)
  Receive Date: 20250908
  Receipt Date: 20250908
  Transmission Date: 20251021
  Serious: Yes (Other)
  Sender: GRIFOLS
  Company Number: US-IGSA-BIG0037767

PATIENT
  Age: 65 Year
  Sex: Female

DRUGS (3)
  1. GAMUNEX-C [Suspect]
     Active Substance: HUMAN IMMUNOGLOBULIN G
     Indication: Polyneuropathy
     Dosage: 100 GRAM, Q.2WK.
     Route: 042
  2. GAMUNEX-C [Suspect]
     Active Substance: HUMAN IMMUNOGLOBULIN G
     Indication: Bacteraemia
     Route: 042
  3. GAMUNEX-C [Suspect]
     Active Substance: HUMAN IMMUNOGLOBULIN G
     Dosage: 100 GRAM, Q.2WK.
     Route: 042
     Dates: start: 20100714

REACTIONS (5)
  - Blood glucose decreased [Recovering/Resolving]
  - Fall [Unknown]
  - Contusion [Unknown]
  - Pleuritic pain [Unknown]
  - Animal bite [Unknown]

NARRATIVE: CASE EVENT DATE: 20250801
